FAERS Safety Report 13582990 (Version 1)
Quarter: 2017Q2

REPORT INFORMATION
  Report Type: Report from Study
  Country: US (occurrence: US)
  Receive Date: 20170525
  Receipt Date: 20170525
  Transmission Date: 20170830
  Serious: Yes (Other)
  Sender: FDA-Public Use
  Company Number: US-JAZZ-2017-US-006284

PATIENT
  Sex: Male

DRUGS (37)
  1. CALCIUM CARBONATE. [Concomitant]
     Active Substance: CALCIUM CARBONATE
  2. PEPTO-BISMOL [Concomitant]
     Active Substance: BISMUTH SUBSALICYLATE
  3. FISH OIL OMEGA 3 [Concomitant]
     Active Substance: FISH OIL
  4. TRAZODONE [Concomitant]
     Active Substance: TRAZODONE HYDROCHLORIDE
  5. TERAZOSIN [Concomitant]
     Active Substance: TERAZOSIN\TERAZOSIN HYDROCHLORIDE
  6. METOPROLOL TARTRATE. [Concomitant]
     Active Substance: METOPROLOL TARTRATE
  7. PROZAC [Concomitant]
     Active Substance: FLUOXETINE HYDROCHLORIDE
  8. TRICOR                             /00090101/ [Concomitant]
     Active Substance: ADENOSINE
  9. VITAMIN B COMPLEX [Concomitant]
     Active Substance: CYANOCOBALAMIN\DEXPANTHENOL\NIACINAMIDE\PYRIDOXINE HYDROCHLORIDE\RIBOFLAVIN 5^-PHOSPHATE SODIUM\THIAMINE HYDROCHLORIDE\VITAMIN B COMPLEX
  10. CALCIUM + VIT D [Concomitant]
     Active Substance: CALCIUM\VITAMIN D
  11. PRAZOSIN. [Concomitant]
     Active Substance: PRAZOSIN
  12. CLONAZEPAM. [Concomitant]
     Active Substance: CLONAZEPAM
  13. HYDROCODONE BITARTRATE AND ACETAMINOPHEN [Concomitant]
     Active Substance: ACETAMINOPHEN\HYDROCODONE BITARTRATE
  14. LISINOPRIL HCTZ [Concomitant]
     Active Substance: HYDROCHLOROTHIAZIDE\LISINOPRIL
  15. METOPROLOL SUCCINATE. [Concomitant]
     Active Substance: METOPROLOL SUCCINATE
  16. VIAGRA [Concomitant]
     Active Substance: SILDENAFIL CITRATE
  17. XYREM [Suspect]
     Active Substance: SODIUM OXYBATE
     Indication: NARCOLEPSY
     Dosage: 3 G, BID
     Route: 048
     Dates: start: 200807, end: 200812
  18. LISINOPRIL. [Concomitant]
     Active Substance: LISINOPRIL
  19. NUVIGIL [Concomitant]
     Active Substance: ARMODAFINIL
  20. ADDERALL [Concomitant]
     Active Substance: AMPHETAMINE ASPARTATE\AMPHETAMINE SULFATE\DEXTROAMPHETAMINE SACCHARATE\DEXTROAMPHETAMINE SULFATE
  21. TESTOSTERON                        /00103101/ [Suspect]
     Active Substance: TESTOSTERONE
     Indication: BLOOD TESTOSTERONE DECREASED
  22. CETIRIZINE HCL [Concomitant]
     Active Substance: CETIRIZINE HYDROCHLORIDE
  23. MIRAPEX [Concomitant]
     Active Substance: PRAMIPEXOLE DIHYDROCHLORIDE
  24. FLONASE                            /00908302/ [Concomitant]
     Active Substance: MOMETASONE FUROATE
  25. RITALIN [Concomitant]
     Active Substance: METHYLPHENIDATE HYDROCHLORIDE
  26. BACTRIM DS [Concomitant]
     Active Substance: SULFAMETHOXAZOLE\TRIMETHOPRIM
  27. LATUDA [Concomitant]
     Active Substance: LURASIDONE HYDROCHLORIDE
  28. PRAMIPEXOLE. [Concomitant]
     Active Substance: PRAMIPEXOLE
  29. ASPIR 81 [Concomitant]
  30. WELLBUTRIN [Concomitant]
     Active Substance: BUPROPION HYDROCHLORIDE
  31. XYREM [Suspect]
     Active Substance: SODIUM OXYBATE
     Indication: CATAPLEXY
     Dosage: 4.5 G, BID
     Route: 048
     Dates: start: 200904, end: 200905
  32. XYREM [Suspect]
     Active Substance: SODIUM OXYBATE
     Dosage: DOSE ADJUSTMENT
     Route: 048
     Dates: start: 201307, end: 201403
  33. XYREM [Suspect]
     Active Substance: SODIUM OXYBATE
     Dosage: 4.5 G, BID
     Route: 048
     Dates: start: 201403
  34. ABILIFY [Concomitant]
     Active Substance: ARIPIPRAZOLE
  35. LITHIUM CARBONATE. [Concomitant]
     Active Substance: LITHIUM CARBONATE
  36. MAGNESIUM CHELATE [Concomitant]
     Active Substance: MAGNESIUM
  37. FENOFIBRATE. [Concomitant]
     Active Substance: FENOFIBRATE

REACTIONS (18)
  - Disability [Not Recovered/Not Resolved]
  - Narcolepsy [Not Recovered/Not Resolved]
  - Rash [Unknown]
  - Libido decreased [Not Recovered/Not Resolved]
  - Swelling [Not Recovered/Not Resolved]
  - Rotator cuff syndrome [Not Recovered/Not Resolved]
  - Social anxiety disorder [Not Recovered/Not Resolved]
  - Inflammation [Unknown]
  - Emotional disorder [Not Recovered/Not Resolved]
  - Anxiety [Not Recovered/Not Resolved]
  - Balance disorder [Not Recovered/Not Resolved]
  - Blood triglycerides increased [Not Recovered/Not Resolved]
  - Stress [Not Recovered/Not Resolved]
  - Memory impairment [Not Recovered/Not Resolved]
  - Dizziness [Unknown]
  - Depression [Recovering/Resolving]
  - Muscle spasms [Unknown]
  - Hypersensitivity [Not Recovered/Not Resolved]
